FAERS Safety Report 19847567 (Version 1)
Quarter: 2021Q3

REPORT INFORMATION
  Report Type: Spontaneous
  Country: CN (occurrence: CN)
  Receive Date: 20210917
  Receipt Date: 20210917
  Transmission Date: 20211014
  Serious: Yes (Other)
  Sender: FDA-Public Use
  Company Number: CN-ASTRAZENECA-2021A725528

PATIENT
  Age: 85 Year
  Sex: Female

DRUGS (2)
  1. IRESSA [Suspect]
     Active Substance: GEFITINIB
     Route: 048
     Dates: start: 202005
  2. TAGRISSO [Suspect]
     Active Substance: OSIMERTINIB
     Route: 048

REACTIONS (5)
  - Oral mucosal blistering [Unknown]
  - Conjunctivitis [Unknown]
  - Rash [Unknown]
  - Non-small cell lung cancer metastatic [Unknown]
  - Lip scab [Recovered/Resolved]
